FAERS Safety Report 6129633-1 (Version None)
Quarter: 2009Q1

REPORT INFORMATION
  Report Type: 
  Country: None (occurrence: None)
  Receive Date: 20090323
  Receipt Date: 20090323
  Transmission Date: 20090719
  Serious: Yes (Life-Threatening, Hospitalization)
  Sender: FDA-Public Use
  Company Number: None

PATIENT
  Age: 28 Year
  Sex: Female
  Weight: 58.9676 kg

DRUGS (1)
  1. VENTOLIN HFA [Suspect]
     Indication: ASTHMA
     Dosage: 1 PUFF AS NEEDED INHAL
     Route: 055
     Dates: start: 20090107, end: 20090107

REACTIONS (8)
  - ANXIETY [None]
  - ASTHMA [None]
  - CONDITION AGGRAVATED [None]
  - PALPITATIONS [None]
  - PRODUCT QUALITY ISSUE [None]
  - TACHYCARDIA [None]
  - TREMOR [None]
  - VOMITING [None]
